FAERS Safety Report 25176014 (Version 3)
Quarter: 2025Q2

REPORT INFORMATION
  Report Type: Report from Study
  Country: CA (occurrence: CA)
  Receive Date: 20250409
  Receipt Date: 20250519
  Transmission Date: 20250717
  Serious: Yes (Other)
  Sender: TAKEDA
  Company Number: CA-TAKEDA-2025TUS034086

PATIENT
  Sex: Male

DRUGS (11)
  1. VEDOLIZUMAB [Suspect]
     Active Substance: VEDOLIZUMAB
     Indication: Colitis ulcerative
  2. VEDOLIZUMAB [Suspect]
     Active Substance: VEDOLIZUMAB
  3. STELARA [Concomitant]
     Active Substance: USTEKINUMAB
  4. PERINDOPRIL [Concomitant]
     Active Substance: PERINDOPRIL
  5. ROSUVASTATIN [Concomitant]
     Active Substance: ROSUVASTATIN
  6. DICLOFENAC [Concomitant]
     Active Substance: DICLOFENAC
  7. PENTASA [Concomitant]
     Active Substance: MESALAMINE
  8. AZATHIOPRINE [Concomitant]
     Active Substance: AZATHIOPRINE
  9. RABEPRAZOLE [Concomitant]
     Active Substance: RABEPRAZOLE
  10. DUTASTERIDE [Concomitant]
     Active Substance: DUTASTERIDE
  11. TAMSULOSIN [Concomitant]
     Active Substance: TAMSULOSIN

REACTIONS (2)
  - Haematochezia [Unknown]
  - Colitis ulcerative [Unknown]
